FAERS Safety Report 25106089 (Version 4)
Quarter: 2025Q3

REPORT INFORMATION
  Report Type: Spontaneous
  Country: JP (occurrence: JP)
  Receive Date: 20250321
  Receipt Date: 20250708
  Transmission Date: 20251020
  Serious: Yes (Death, Hospitalization, Other)
  Sender: PFIZER
  Company Number: JP-ONO-2025JP004884

PATIENT
  Age: 72 Year
  Sex: Male

DRUGS (13)
  1. BRAFTOVI [Suspect]
     Active Substance: ENCORAFENIB
     Indication: Thyroid cancer
     Route: 048
     Dates: start: 20240703
  2. MEKTOVI [Suspect]
     Active Substance: BINIMETINIB
     Indication: Thyroid cancer
     Route: 048
     Dates: start: 20240703
  3. AMLODIPINE [Concomitant]
     Active Substance: AMLODIPINE BESYLATE
     Route: 048
  4. AMLODIPINE [Concomitant]
     Active Substance: AMLODIPINE BESYLATE
     Route: 048
  5. IRBESARTAN [Concomitant]
     Active Substance: IRBESARTAN
     Route: 048
  6. IRBESARTAN [Concomitant]
     Active Substance: IRBESARTAN
     Route: 048
  7. DOXAZOSIN [Concomitant]
     Active Substance: DOXAZOSIN MESYLATE
     Route: 048
  8. ROSUVASTATIN [Concomitant]
     Active Substance: ROSUVASTATIN
     Route: 048
  9. AROTINOLOL HYDROCHLORIDE [Concomitant]
     Active Substance: AROTINOLOL HYDROCHLORIDE
     Route: 048
  10. TRICHLORMETHIAZIDE [Concomitant]
     Active Substance: TRICHLORMETHIAZIDE
     Route: 065
  11. LENVATINIB MESYLATE [Concomitant]
     Active Substance: LENVATINIB MESYLATE
     Indication: Thyroid cancer
     Route: 048
     Dates: start: 20240903
  12. LENVATINIB MESYLATE [Concomitant]
     Active Substance: LENVATINIB MESYLATE
     Route: 048
     Dates: start: 20241224
  13. PACLITAXEL [Concomitant]
     Active Substance: PACLITAXEL
     Indication: Thyroid cancer
     Dosage: UNK, WEEKLY
     Route: 065
     Dates: start: 20241126

REACTIONS (9)
  - Malignant neoplasm progression [Fatal]
  - Thyroid cancer [Fatal]
  - Malaise [Unknown]
  - Macular oedema [Unknown]
  - Decreased appetite [Unknown]
  - C-reactive protein increased [Unknown]
  - Vocal cord paralysis [Unknown]
  - Vitreous floaters [Unknown]
  - Pyrexia [Unknown]

NARRATIVE: CASE EVENT DATE: 20240803
